FAERS Safety Report 18559154 (Version 1)
Quarter: 2020Q4

REPORT INFORMATION
  Report Type: Spontaneous
  Country: US (occurrence: US)
  Receive Date: 20201125
  Receipt Date: 20201125
  Transmission Date: 20210114
  Serious: Yes (Hospitalization)
  Sender: FDA-Public Use
  Company Number: None

PATIENT
  Age: 57 Year
  Sex: Female
  Weight: 72 kg

DRUGS (19)
  1. METHYLPREDNISOLONE. [Concomitant]
     Active Substance: METHYLPREDNISOLONE
  2. IPILIMUMAB 3MG/KG [Suspect]
     Active Substance: IPILIMUMAB
     Indication: IMMUNE SYSTEM DISORDER
     Dosage: ?          OTHER FREQUENCY:EVERY21DAYS ;?
     Dates: start: 20200605, end: 20201028
  3. TIZANIDINE. [Suspect]
     Active Substance: TIZANIDINE
  4. ZOFRAN ODT [Concomitant]
     Active Substance: ONDANSETRON HYDROCHLORIDE
  5. OXYCODONE [Concomitant]
     Active Substance: OXYCODONE
  6. METFORMIN [Concomitant]
     Active Substance: METFORMIN HYDROCHLORIDE
  7. TYLENOL [Suspect]
     Active Substance: ACETAMINOPHEN
  8. NIVOLUMAB 1MG/KG [Suspect]
     Active Substance: NIVOLUMAB
     Indication: PRODUCT USED FOR UNKNOWN INDICATION
     Dosage: ?          OTHER FREQUENCY:EVERY21DAYS;?
     Dates: start: 20200424, end: 20201028
  9. OMEPRAZOLE. [Concomitant]
     Active Substance: OMEPRAZOLE
  10. IBUPROFEN. [Concomitant]
     Active Substance: IBUPROFEN
  11. PROMETHAZINE [Concomitant]
     Active Substance: PROMETHAZINE HYDROCHLORIDE
  12. SIIMETHICONE [Concomitant]
  13. CLONAZEPAM. [Concomitant]
     Active Substance: CLONAZEPAM
  14. CIPRO [Concomitant]
     Active Substance: CIPROFLOXACIN HYDROCHLORIDE
  15. SYNTHROID [Concomitant]
     Active Substance: LEVOTHYROXINE SODIUM
  16. CALCIUM [Concomitant]
     Active Substance: CALCIUM
  17. FAMOTIDINE. [Concomitant]
     Active Substance: FAMOTIDINE
  18. ONDANSETRON [Concomitant]
     Active Substance: ONDANSETRON
  19. PREMARIN [Concomitant]
     Active Substance: ESTROGENS, CONJUGATED

REACTIONS (3)
  - Back pain [None]
  - Vertebral foraminal stenosis [None]
  - Pelvic mass [None]

NARRATIVE: CASE EVENT DATE: 20200807
